FAERS Safety Report 9628432 (Version 2)
Quarter: 2013Q4

REPORT INFORMATION
  Report Type: Spontaneous
  Country: US (occurrence: US)
  Receive Date: 20131017
  Receipt Date: 20131028
  Transmission Date: 20140711
  Serious: No
  Sender: FDA-Public Use
  Company Number: US-PFIZER INC-2013292520

PATIENT
  Age: 73 Year
  Sex: Male

DRUGS (2)
  1. TORISEL [Suspect]
     Indication: NEOPLASM MALIGNANT
     Dosage: 15 ML, UNK
     Dates: start: 20131010
  2. BENADRYL [Concomitant]
     Indication: PREMEDICATION
     Dosage: 50 MG, HALF AN HOUR BEFORE TEMSIROLIMUS
     Dates: start: 20131010

REACTIONS (4)
  - Infusion related reaction [Recovered/Resolved]
  - Hypersensitivity [Recovered/Resolved]
  - Erythema [Recovered/Resolved]
  - Hypertension [Recovered/Resolved]
